FAERS Safety Report 23365571 (Version 1)
Quarter: 2024Q1

REPORT INFORMATION
  Report Type: Spontaneous
  Country: US (occurrence: US)
  Receive Date: 20240104
  Receipt Date: 20240104
  Transmission Date: 20240410
  Serious: No
  Sender: FDA-Public Use
  Company Number: US-MELINTA THERAPEUTICS, LLC-US-MLNT-23-00582

PATIENT
  Sex: Female

DRUGS (2)
  1. KIMYRSA [Suspect]
     Active Substance: ORITAVANCIN DIPHOSPHATE
     Indication: Osteomyelitis
     Dosage: UNK, SINGLE
     Route: 041
  2. KIMYRSA [Suspect]
     Active Substance: ORITAVANCIN DIPHOSPHATE
     Dosage: UNK, SINGLE
     Route: 041

REACTIONS (6)
  - Discomfort [Recovering/Resolving]
  - Flushing [Unknown]
  - Drug hypersensitivity [Unknown]
  - Off label use [Recovering/Resolving]
  - Multiple use of single-use product [Recovering/Resolving]
  - Drug effective for unapproved indication [Recovering/Resolving]
